FAERS Safety Report 6656755-9 (Version None)
Quarter: 2010Q1

REPORT INFORMATION
  Report Type: 
  Country: None (occurrence: None)
  Receive Date: 20100324
  Receipt Date: 20100321
  Transmission Date: 20100710
  Serious: Yes (Congenital Anomaly, Other)
  Sender: FDA-Public Use
  Company Number: 1000012621

PATIENT
  Sex: Female

DRUGS (1)
  1. CELEXA [Suspect]
     Dosage: ORAL
     Route: 048

REACTIONS (4)
  - CONGENITAL ANOMALY [None]
  - DEXTROCARDIA [None]
  - DIAPHRAGMATIC HERNIA [None]
  - MATERNAL DRUGS AFFECTING FOETUS [None]
